FAERS Safety Report 9739007 (Version 2)
Quarter: 2013Q4

REPORT INFORMATION
  Report Type: Report from Study
  Country: CZ (occurrence: CZ)
  Receive Date: 20131209
  Receipt Date: 20131219
  Transmission Date: 20140711
  Serious: Yes (Death, Other)
  Sender: FDA-Public Use
  Company Number: PHHY2013CZ142326

PATIENT
  Sex: Male

DRUGS (2)
  1. IMATINIB [Suspect]
     Dosage: UNK UKN, UNK
     Dates: start: 20020221, end: 20050412
  2. DASATINIB [Suspect]
     Dosage: UNK UKN, UNK

REACTIONS (4)
  - Infection [Fatal]
  - Pneumonia [Fatal]
  - Cerebrovascular accident [Fatal]
  - Pancytopenia [Unknown]
